FAERS Safety Report 4685942-4 (Version None)
Quarter: 2005Q2

REPORT INFORMATION
  Report Type: 
  Country: None (occurrence: None)
  Receive Date: 20050606
  Receipt Date: 20050523
  Transmission Date: 20051028
  Serious: Yes (Other)
  Sender: FDA-Public Use
  Company Number: CIP05001162

PATIENT
  Sex: Female

DRUGS (3)
  1. ACTONEL [Suspect]
     Indication: OSTEOPOROSIS
     Dosage: ORAL
     Route: 048
  2. FOSAMAX [Suspect]
     Indication: OSTEOPOROSIS
     Dosage: ORAL
     Route: 048
  3. CALCIUM (CALCIUM) [Concomitant]

REACTIONS (5)
  - IMPAIRED HEALING [None]
  - JAW DISORDER [None]
  - ORAL INFECTION [None]
  - OSTEONECROSIS [None]
  - PURULENCE [None]
